FAERS Safety Report 10907525 (Version 2)
Quarter: 2015Q1

REPORT INFORMATION
  Report Type: Spontaneous
  Country: US (occurrence: US)
  Receive Date: 20150312
  Receipt Date: 20150323
  Transmission Date: 20150721
  Serious: No
  Sender: FDA-Public Use
  Company Number: US-009507513-1503USA005990

PATIENT
  Age: 66 Year
  Sex: Female
  Weight: 124.72 kg

DRUGS (1)
  1. OXYTROL FOR WOMEN [Suspect]
     Active Substance: OXYBUTYNIN
     Indication: URGE INCONTINENCE
     Dosage: 1 DF, Q4D
     Route: 062
     Dates: start: 20150210, end: 20150301

REACTIONS (6)
  - Application site rash [Recovered/Resolved]
  - Application site irritation [Recovered/Resolved]
  - Application site erythema [Recovered/Resolved]
  - Application site reaction [Recovered/Resolved]
  - Application site pain [Recovered/Resolved]
  - Application site discomfort [Recovered/Resolved]

NARRATIVE: CASE EVENT DATE: 20150225
